FAERS Safety Report 18082719 (Version 3)
Quarter: 2021Q2

REPORT INFORMATION
  Report Type: Spontaneous
  Country: US (occurrence: US)
  Receive Date: 20200728
  Receipt Date: 20210409
  Transmission Date: 20210717
  Serious: Yes (Hospitalization, Disabling, Other)
  Sender: FDA-Public Use
  Company Number: US-B.I. PHARMACEUTICALS,INC./RIDGEFIELD-2020-BI-037197

PATIENT
  Age: 44 Year
  Sex: Female

DRUGS (19)
  1. LIPITOR [Concomitant]
     Active Substance: ATORVASTATIN CALCIUM
     Indication: PRODUCT USED FOR UNKNOWN INDICATION
     Dosage: ATORVASTATIN 80 MG TABLET??TAKE 1 TABLET BY MOUTH NIGHTLY.
     Route: 048
  2. MELATONIN [Concomitant]
     Active Substance: MELATONIN
     Indication: INSOMNIA
     Dosage: MELATONIN 5 MG TABLET?TAKE 5 MG BY MOUTH NIGHTLY AS NEEDED FOR
     Route: 048
  3. NAPROSYN [Concomitant]
     Active Substance: NAPROXEN
     Indication: PRODUCT USED FOR UNKNOWN INDICATION
     Dosage: NAPROXEN 500 MG TABLET
     Route: 065
  4. PROAIR HFA [Concomitant]
     Active Substance: ALBUTEROL SULFATE
     Indication: PRODUCT USED FOR UNKNOWN INDICATION
  5. BASAGLAR [Concomitant]
     Active Substance: INSULIN GLARGINE
     Indication: PRODUCT USED FOR UNKNOWN INDICATION
     Dosage: INSULIN GLARGINE 100 UNITS/ML INJECTION (PEN)?INJECT 80 UNITS UNDER THE SKIN NIGHTLY FOR 90 DAYS
     Route: 050
  6. LISINOPRIL. [Concomitant]
     Active Substance: LISINOPRIL
     Indication: PRODUCT USED FOR UNKNOWN INDICATION
     Dosage: LISINOPRIL 40 MG TABLET?TAKE 40 MG BY MOUTH NIGHTLY.
     Route: 048
  7. REQUIP [Concomitant]
     Active Substance: ROPINIROLE HYDROCHLORIDE
     Indication: PRODUCT USED FOR UNKNOWN INDICATION
     Dosage: ROPINIROLE 2 MG TABLET?TAKE 1 TABLET BY MOUTH NIGHTLY.
     Route: 048
  8. ELAVIL [Concomitant]
     Active Substance: AMITRIPTYLINE HYDROCHLORIDE
     Indication: PRODUCT USED FOR UNKNOWN INDICATION
     Dosage: AMITRIPTYLINE 50 MG TABLET?TAKE 2 TABLETS BY MOUTH NIGHTLY
     Route: 048
  9. MYCOSTATIN [Concomitant]
     Active Substance: NYSTATIN
     Indication: RASH
     Dosage: NYSTATIN POWDER?APPLY TOPICALLY 3 TIMES DAILY AS NEEDED FOR?RASH.
     Route: 061
  10. LACTOBACILLUS [Concomitant]
     Active Substance: LACTOBACILLUS ACIDOPHILUS
     Indication: PRODUCT USED FOR UNKNOWN INDICATION
  11. JARDIANCE [Suspect]
     Active Substance: EMPAGLIFLOZIN
     Indication: TYPE 2 DIABETES MELLITUS
     Dosage: EMPAGLIFLOZIN 25 MG TABLET
     Route: 048
     Dates: start: 20170915, end: 20171117
  12. KLOR?CON [Concomitant]
     Active Substance: POTASSIUM CHLORIDE
     Indication: PRODUCT USED FOR UNKNOWN INDICATION
     Dosage: POTASSIUM CHLORIDE 10 MEQ CR TABLET?TAKE 1 TABLET TWICE DAILY
     Route: 065
  13. NORVASC [Concomitant]
     Active Substance: AMLODIPINE BESYLATE
     Indication: PRODUCT USED FOR UNKNOWN INDICATION
     Dosage: AMLODIPINE 5 MG TABLET
     Route: 065
  14. TYLENOL [Concomitant]
     Active Substance: ACETAMINOPHEN
     Indication: PRODUCT USED FOR UNKNOWN INDICATION
  15. NEURONTIN [Concomitant]
     Active Substance: GABAPENTIN
     Indication: PRODUCT USED FOR UNKNOWN INDICATION
     Dosage: GABAPENTIN 300 MG CAPSULE?TAKE 1 CAPSULE BY MOUTH 3 TIMES DAILY.
     Route: 048
  16. CARVEDILOL. [Concomitant]
     Active Substance: CARVEDILOL
     Indication: PRODUCT USED FOR UNKNOWN INDICATION
  17. GLUCOPHAGE XR [Concomitant]
     Active Substance: METFORMIN HYDROCHLORIDE
     Indication: PRODUCT USED FOR UNKNOWN INDICATION
     Dosage: METFORMIN 500 MG 24 HR TABLET??TAKE 2 TABLETS BY MOUTH NIGHTLY.
     Route: 048
  18. PROTONIX [Concomitant]
     Active Substance: PANTOPRAZOLE SODIUM
     Indication: PRODUCT USED FOR UNKNOWN INDICATION
     Dosage: PANTOPRAZOLE 40 MG TABLET.?TAKE 40 MG BY MOUTH EVERY MORNING (BEFORE?BREAKFAST).
     Route: 048
  19. DEMADEX [Concomitant]
     Active Substance: TORSEMIDE
     Indication: PRODUCT USED FOR UNKNOWN INDICATION
     Dosage: TORSEMIDE 20 MG TABLET?TAKE 0.5?1.5 TABLETS BY MOUTH 2 TIMES DAILY.?TAKING 1.5 TABS QAM AND 0.5 TABS
     Route: 048

REACTIONS (2)
  - Vulval abscess [Unknown]
  - Necrotising fasciitis [Unknown]

NARRATIVE: CASE EVENT DATE: 20171003
